FAERS Safety Report 8773936 (Version 2)
Quarter: 2012Q4

REPORT INFORMATION
  Report Type: 
  Country: FR (occurrence: FR)
  Receive Date: 20120910
  Receipt Date: 20120925
  Transmission Date: 20130627
  Serious: Yes (Hospitalization, Other)
  Sender: FDA-Public Use
  Company Number: FR-ABBOTT-12P-056-0975336-00

PATIENT
  Sex: Male

DRUGS (8)
  1. NORVIR SOFT GELATIN CAPSULES [Suspect]
     Indication: HIV INFECTION
     Route: 048
     Dates: start: 201201, end: 201201
  2. DARUNAVIR [Suspect]
     Indication: HIV INFECTION
     Route: 048
     Dates: start: 201201, end: 201201
  3. TENOFOVIR DISOPROXIL [Suspect]
     Indication: HIV INFECTION
     Route: 048
     Dates: start: 201201, end: 201201
  4. ABACAVIR [Suspect]
     Indication: HIV INFECTION
     Route: 048
     Dates: start: 201201, end: 201201
  5. ABACAVIR [Suspect]
     Route: 048
     Dates: start: 201204
  6. METFORMINE [Concomitant]
     Indication: PRODUCT USED FOR UNKNOWN INDICATION
     Route: 048
  7. ENALAPRIL (RENITEC) [Concomitant]
     Indication: PRODUCT USED FOR UNKNOWN INDICATION
     Route: 055
  8. SALBUTAMOL (VENTOLINE) [Concomitant]
     Indication: PRODUCT USED FOR UNKNOWN INDICATION
     Route: 048

REACTIONS (7)
  - Proteinuria [Unknown]
  - Vomiting [Recovered/Resolved]
  - Generalised oedema [Recovered/Resolved]
  - Skin test negative [Unknown]
  - Nausea [Unknown]
  - Weight increased [Unknown]
  - Hypertension [Unknown]
